FAERS Safety Report 21547760 (Version 1)
Quarter: 2022Q4

REPORT INFORMATION
  Report Type: Report from Study
  Country: US (occurrence: US)
  Receive Date: 20221103
  Receipt Date: 20221103
  Transmission Date: 20230112
  Serious: No
  Sender: FDA-Public Use
  Company Number: US-ABBVIE-22K-163-4434998-00

PATIENT
  Sex: Male

DRUGS (2)
  1. IMBRUVICA [Suspect]
     Active Substance: IBRUTINIB
     Indication: B-cell small lymphocytic lymphoma
     Route: 048
     Dates: start: 201902
  2. IMBRUVICA [Suspect]
     Active Substance: IBRUTINIB
     Indication: B-cell small lymphocytic lymphoma
     Route: 048

REACTIONS (7)
  - Blood immunoglobulin M abnormal [Unknown]
  - Depression [Unknown]
  - Pancreatic disorder [Unknown]
  - Hepatic lesion [Unknown]
  - Diarrhoea [Unknown]
  - Blood immunoglobulin G abnormal [Unknown]
  - Renal function test abnormal [Unknown]
